FAERS Safety Report 9210799 (Version 1)
Quarter: 2013Q2

REPORT INFORMATION
  Report Type: Spontaneous
  Country: DE (occurrence: DE)
  Receive Date: 20130404
  Receipt Date: 20130404
  Transmission Date: 20140414
  Serious: Yes (Congenital Anomaly, Other)
  Sender: FDA-Public Use
  Company Number: GXKR2013DE001305

PATIENT
  Sex: 0

DRUGS (8)
  1. LAMOTRIGINE [Suspect]
     Dosage: MATERNAL DOSE: 400 MG/D (4X100)
     Route: 064
     Dates: start: 20110916, end: 20120425
  2. NEOVIN [Concomitant]
     Indication: PROPHYLAXIS OF NEURAL TUBE DEFECT
     Dosage: MATERNAL DOSE: 0.4 MG/D
     Route: 064
  3. CELESTAN [Concomitant]
     Indication: MATERNAL THERAPY TO ENHANCE FOETAL LUNG MATURITY
     Route: 064
     Dates: start: 20120228, end: 20120229
  4. UTROGEST [Concomitant]
     Indication: SHORTENED CERVIX
     Dosage: MATERNAL DOSE: 200 [MG/D ]
     Route: 064
     Dates: start: 20120229, end: 20120320
  5. IBUPROFEN [Concomitant]
     Indication: PAIN
     Route: 064
  6. FRAGMIN P [Concomitant]
     Indication: THROMBOSIS PROPHYLAXIS
     Route: 064
     Dates: start: 20120229, end: 20120320
  7. NIFEHEXAL [Concomitant]
     Indication: TOCOLYSIS
     Dosage: MATERNAL DOSE: EXACT BEGIN OF THERAPY UNKNOWN
     Route: 064
     Dates: end: 20120320
  8. TRACTOCILE [Concomitant]
     Indication: TOCOLYSIS
     Route: 064
     Dates: start: 20120229, end: 20120229

REACTIONS (4)
  - Transposition of the great vessels [Not Recovered/Not Resolved]
  - Patent ductus arteriosus [Not Recovered/Not Resolved]
  - Atrial septal defect [Not Recovered/Not Resolved]
  - Foetal exposure during pregnancy [Unknown]
